FAERS Safety Report 6753041-3 (Version None)
Quarter: 2010Q2

REPORT INFORMATION
  Report Type: 
  Country: None (occurrence: None)
  Receive Date: 20100603
  Receipt Date: 20100528
  Transmission Date: 20101027
  Serious: Yes (Death, Hospitalization)
  Sender: FDA-Public Use
  Company Number: JP-BAYER-201010119BYL

PATIENT
  Age: 65 Year
  Sex: Male
  Weight: 70 kg

DRUGS (7)
  1. NEXAVAR [Suspect]
     Indication: HEPATIC NEOPLASM MALIGNANT
     Dosage: UNIT DOSE: 200 MG
     Route: 048
     Dates: start: 20091130, end: 20091209
  2. URSO 250 [Concomitant]
     Indication: HEPATIC FUNCTION ABNORMAL
     Dosage: UNIT DOSE: 100 MG
     Route: 048
     Dates: start: 20020409
  3. GASTER D [Concomitant]
     Indication: GASTRIC ULCER
     Dosage: UNIT DOSE: 20 MG
     Route: 048
     Dates: start: 20031228
  4. LASIX [Concomitant]
     Indication: ASCITES
     Dosage: UNIT DOSE: 40 MG
     Route: 048
     Dates: start: 20080426
  5. AMARYL [Concomitant]
     Indication: DIABETES MELLITUS
     Dosage: UNIT DOSE: 1 MG
     Route: 048
     Dates: start: 20040214
  6. MONILAC [Concomitant]
     Indication: AMMONIA INCREASED
     Dosage: UNIT DOSE: 30 G
     Route: 048
     Dates: start: 20040214
  7. AMINOLEBAN EN [Concomitant]
     Indication: AMMONIA INCREASED
     Route: 048
     Dates: start: 20091216

REACTIONS (2)
  - HEPATIC FAILURE [None]
  - HYPERAMMONAEMIA [None]
